FAERS Safety Report 14988293 (Version 1)
Quarter: 2018Q2

REPORT INFORMATION
  Report Type: Report from Study
  Country: CA (occurrence: CA)
  Receive Date: 20180608
  Receipt Date: 20180608
  Transmission Date: 20180711
  Serious: Yes (Other)
  Sender: FDA-Public Use
  Company Number: CA-IPSEN BIOPHARMACEUTICALS, INC.-2018-02698

PATIENT
  Age: 64 Year
  Sex: Male

DRUGS (1)
  1. SOMATULINE AUTOGEL [Suspect]
     Active Substance: LANREOTIDE ACETATE
     Indication: NEUROENDOCRINE TUMOUR
     Dosage: 120 MG
     Route: 058
     Dates: start: 20160629

REACTIONS (8)
  - Influenza [Recovered/Resolved]
  - Injection site haemorrhage [Recovered/Resolved]
  - Pneumonia [Recovered/Resolved]
  - Productive cough [Recovering/Resolving]
  - Musculoskeletal chest pain [Recovering/Resolving]
  - Abdominal pain [Recovering/Resolving]
  - Poor quality sleep [Unknown]
  - Injection site pain [Recovered/Resolved]

NARRATIVE: CASE EVENT DATE: 201802
